FAERS Safety Report 20992928 (Version 1)
Quarter: 2022Q2

REPORT INFORMATION
  Report Type: Spontaneous
  Country: US (occurrence: None)
  Receive Date: 20220621
  Receipt Date: 20220621
  Transmission Date: 20220721
  Serious: Yes (Life-Threatening)
  Sender: FDA-Public Use
  Company Number: None

PATIENT
  Age: 65 Year
  Sex: Female
  Weight: 87 kg

DRUGS (1)
  1. ALTEPLASE [Suspect]
     Active Substance: ALTEPLASE
     Indication: Ischaemic stroke
     Dosage: FREQUENCY : ONCE;?
     Route: 041
     Dates: start: 20220430, end: 20220430

REACTIONS (4)
  - Angioedema [None]
  - Swollen tongue [None]
  - Pharyngeal swelling [None]
  - Lip swelling [None]

NARRATIVE: CASE EVENT DATE: 20220430
